FAERS Safety Report 8375036-9 (Version None)
Quarter: 2012Q2

REPORT INFORMATION
  Report Type: 
  Country: None (occurrence: None)
  Receive Date: 20120521
  Receipt Date: 20120517
  Transmission Date: 20120825
  Serious: Yes (Hospitalization)
  Sender: FDA-Public Use
  Company Number: SK-ABBOTT-12P-260-0936220-00

PATIENT
  Sex: Female

DRUGS (1)
  1. TARKA [Suspect]
     Indication: ESSENTIAL HYPERTENSION
     Route: 048

REACTIONS (1)
  - RENAL FAILURE [None]
